FAERS Safety Report 7349183-4 (Version None)
Quarter: 2011Q1

REPORT INFORMATION
  Report Type: 
  Country: None (occurrence: None)
  Receive Date: 20110303
  Receipt Date: 20110218
  Transmission Date: 20110831
  Serious: Yes (Other)
  Sender: FDA-Public Use
  Company Number: 1000017021

PATIENT
  Age: 59 Year
  Sex: Male
  Weight: 76 kg

DRUGS (5)
  1. MEMANTINE [Suspect]
     Indication: DEMENTIA ALZHEIMER'S TYPE
     Dosage: 20 MG (20 MG, 1 IN 1 D), ORAL
     Route: 048
  2. MEMANTINE [Suspect]
     Indication: PARKINSONISM
     Dosage: 20 MG (20 MG, 1 IN 1 D), ORAL
     Route: 048
  3. MEMANTINE [Suspect]
     Indication: PARKINSONISM
     Dosage: ORAL
     Route: 048
  4. MEMANTINE [Suspect]
     Indication: DEMENTIA ALZHEIMER'S TYPE
     Dosage: ORAL
     Route: 048
  5. LEVODOPA (LEVODOPA) [Concomitant]

REACTIONS (1)
  - LOSS OF CONSCIOUSNESS [None]
